FAERS Safety Report 5599546-2 (Version None)
Quarter: 2008Q1

REPORT INFORMATION
  Report Type: 
  Country: None (occurrence: None)
  Receive Date: 20080123
  Receipt Date: 20080116
  Transmission Date: 20080703
  Serious: Yes (Other)
  Sender: FDA-Public Use
  Company Number: PHBS2008NO01021

PATIENT
  Age: 72 Year
  Sex: Female

DRUGS (7)
  1. SANDIMMUNE [Suspect]
     Indication: PSORIASIS
     Dosage: 175 MG, BID
     Route: 065
     Dates: start: 20051122, end: 20060115
  2. SANDIMMUNE [Suspect]
     Dosage: 125 MG, BID
     Route: 065
     Dates: start: 20060116, end: 20060119
  3. SANDIMMUNE [Suspect]
     Dosage: 50 MG/D
     Route: 065
     Dates: start: 20060120
  4. ACETAMINOPHEN [Concomitant]
     Indication: HEADACHE
  5. ENBREL [Concomitant]
     Indication: PSORIASIS
     Dosage: 50 MG 2 WEEKLY
     Route: 058
     Dates: start: 20060501
  6. ESCITALOPRAM [Concomitant]
     Indication: DEPRESSION
  7. ARICEPT [Concomitant]
     Indication: AMNESIA
     Dates: start: 20070801

REACTIONS (6)
  - AMNESIA [None]
  - COUGH [None]
  - HEADACHE [None]
  - MEMORY IMPAIRMENT [None]
  - NASOPHARYNGITIS [None]
  - PURULENCE [None]
